FAERS Safety Report 23603676 (Version 2)
Quarter: 2024Q2

REPORT INFORMATION
  Report Type: Report from Study
  Country: US (occurrence: US)
  Receive Date: 20240307
  Receipt Date: 20240605
  Transmission Date: 20240716
  Serious: Yes (Other)
  Sender: FDA-Public Use
  Company Number: US-JNJFOC-20240283955

PATIENT
  Sex: Female
  Weight: 59.02 kg

DRUGS (1)
  1. SIMPONI ARIA [Suspect]
     Active Substance: GOLIMUMAB
     Indication: Psoriatic arthropathy
     Route: 041
     Dates: start: 20240201

REACTIONS (8)
  - Pneumonia [Unknown]
  - Psoriatic arthropathy [Not Recovered/Not Resolved]
  - Chronic obstructive pulmonary disease [Unknown]
  - Headache [Not Recovered/Not Resolved]
  - Rotator cuff syndrome [Unknown]
  - Abdominal pain upper [Unknown]
  - Weight decreased [Unknown]
  - Hypertension [Unknown]
